FAERS Safety Report 8380188-0 (Version None)
Quarter: 2012Q2

REPORT INFORMATION
  Report Type: 
  Country: None (occurrence: None)
  Receive Date: 20120523
  Receipt Date: 20120518
  Transmission Date: 20120825
  Serious: Yes (Other)
  Sender: FDA-Public Use
  Company Number: US-PFIZER INC-2012121488

PATIENT
  Sex: Female
  Weight: 59 kg

DRUGS (4)
  1. EXTRA STRENGTH TYLENOL [Concomitant]
     Indication: SLEEP DISORDER
     Dosage: UNK, AS NEEDED
  2. LIPITOR [Suspect]
     Dosage: 40 MG, DAILY
     Route: 048
     Dates: start: 20110801, end: 20120401
  3. DIOVAN [Concomitant]
     Indication: HYPERTENSION
     Dosage: 25 MG, DAILY
  4. SYNTHROID [Concomitant]
     Indication: THYROID HORMONE REPLACEMENT THERAPY
     Dosage: 0.75 MG, DAILY
     Dates: start: 19750101

REACTIONS (4)
  - MYALGIA [None]
  - GAIT DISTURBANCE [None]
  - FALL [None]
  - DIARRHOEA [None]
